FAERS Safety Report 24140794 (Version 3)
Quarter: 2024Q3

REPORT INFORMATION
  Report Type: Spontaneous
  Country: JP (occurrence: JP)
  Receive Date: 20240726
  Receipt Date: 20240812
  Transmission Date: 20241017
  Serious: Yes (Death, Life-Threatening, Hospitalization)
  Sender: MACLEODS
  Company Number: JP-MACLEODS PHARMA-MAC2024048436

PATIENT

DRUGS (1)
  1. METFORMIN [Suspect]
     Active Substance: METFORMIN HYDROCHLORIDE
     Indication: Diabetes mellitus
     Dosage: HAD INGESTED APPROXIMATELY 71 G OF METFORMIN,
     Route: 048

REACTIONS (13)
  - Circulatory collapse [Fatal]
  - Cardiac arrest [Fatal]
  - Toxicity to various agents [Fatal]
  - Vasoplegia syndrome [Fatal]
  - Seizure [Fatal]
  - Pulseless electrical activity [Fatal]
  - Hypoxic-ischaemic encephalopathy [Fatal]
  - Metabolic acidosis [Fatal]
  - Hypotension [Fatal]
  - Toxicity to various agents [Fatal]
  - Loss of consciousness [Unknown]
  - Lactic acidosis [Fatal]
  - Overdose [Fatal]
